FAERS Safety Report 20827787 (Version 1)
Quarter: 2022Q2

REPORT INFORMATION
  Report Type: Spontaneous
  Country: US (occurrence: None)
  Receive Date: 20220513
  Receipt Date: 20220513
  Transmission Date: 20220720
  Serious: Yes (Other)
  Sender: FDA-Public Use
  Company Number: None

PATIENT
  Age: 30 Year
  Sex: Female
  Weight: 122.7 kg

DRUGS (1)
  1. IRON DEXTRAN [Suspect]
     Active Substance: IRON DEXTRAN
     Indication: Iron deficiency
     Dosage: OTHER FREQUENCY : ONCE;?
     Route: 042

REACTIONS (4)
  - Dizziness [None]
  - Throat tightness [None]
  - Headache [None]
  - Chest discomfort [None]

NARRATIVE: CASE EVENT DATE: 20220510
